FAERS Safety Report 18052977 (Version 2)
Quarter: 2025Q4

REPORT INFORMATION
  Report Type: Spontaneous
  Country: EU (occurrence: EU)
  Receive Date: 20200722
  Receipt Date: 20251007
  Transmission Date: 20260118
  Serious: Yes (Life-Threatening, Hospitalization, Other)
  Sender: AUROBINDO
  Company Number: EU-MLMSERVICE-20200708-2360717-1

PATIENT
  Age: 15 Year
  Sex: Male

DRUGS (2)
  1. AMIODARONE [Suspect]
     Active Substance: AMIODARONE
     Indication: Ventricular fibrillation
     Dosage: UNK
     Route: 065
  2. SUPRARENIN [Suspect]
     Active Substance: EPINEPHRINE
     Indication: Ventricular fibrillation
     Dosage: UNK
     Route: 065

REACTIONS (5)
  - Ventricular tachycardia [Recovered/Resolved]
  - Long QT syndrome [Recovered/Resolved]
  - Bradycardia [Recovered/Resolved]
  - Ventricular tachycardia [Recovered/Resolved]
  - Ventricular fibrillation [Recovered/Resolved]
